FAERS Safety Report 14969823 (Version 5)
Quarter: 2019Q1

REPORT INFORMATION
  Report Type: Spontaneous
  Country: US (occurrence: US)
  Receive Date: 20180604
  Receipt Date: 20190123
  Transmission Date: 20190417
  Serious: No
  Sender: FDA-Public Use
  Company Number: US-CELGENEUS-USA-20180510964

PATIENT
  Sex: Male

DRUGS (3)
  1. CLOBETASOL 0.05% [Concomitant]
     Active Substance: CLOBETASOL
     Indication: PSORIASIS
     Route: 061
     Dates: start: 20180413, end: 20180515
  2. TACROLIMUS. [Concomitant]
     Active Substance: TACROLIMUS
     Indication: PSORIASIS
     Route: 061
     Dates: start: 20180509, end: 20180515
  3. OTEZLA [Suspect]
     Active Substance: APREMILAST
     Indication: PSORIASIS
     Dosage: 60 MILLIGRAM
     Route: 048
     Dates: start: 20180426, end: 20180515

REACTIONS (3)
  - Gastric infection [Unknown]
  - Pyrexia [Recovered/Resolved]
  - Diarrhoea [Recovered/Resolved]

NARRATIVE: CASE EVENT DATE: 2018
